FAERS Safety Report 15386110 (Version 2)
Quarter: 2018Q4

REPORT INFORMATION
  Report Type: Spontaneous
  Country: GB (occurrence: GB)
  Receive Date: 20180914
  Receipt Date: 20181002
  Transmission Date: 20190204
  Serious: Yes (Other)
  Sender: FDA-Public Use
  Company Number: GB-PFIZER INC-2018365127

PATIENT
  Sex: Female

DRUGS (1)
  1. SERTRALINE HCL [Suspect]
     Active Substance: SERTRALINE HYDROCHLORIDE
     Dosage: UNK
     Route: 065

REACTIONS (6)
  - Product substitution issue [Recovered/Resolved]
  - Abnormal dreams [Recovered/Resolved]
  - Drug ineffective [Unknown]
  - Panic attack [Recovered/Resolved]
  - Withdrawal syndrome [Recovered/Resolved]
  - Anxiety [Recovered/Resolved]
